FAERS Safety Report 9261289 (Version 19)
Quarter: 2014Q4

REPORT INFORMATION
  Report Type: Spontaneous
  Country: US (occurrence: US)
  Receive Date: 20130429
  Receipt Date: 20141023
  Transmission Date: 20150529
  Serious: Yes (Hospitalization, Other)
  Sender: FDA-Public Use
  Company Number: US-GLAXOSMITHKLINE-A1021518A

PATIENT
  Age: 49 Year
  Sex: Female

DRUGS (17)
  1. FLOLAN [Suspect]
     Active Substance: EPOPROSTENOL SODIUM
     Dosage: UNK
     Dates: start: 20130313
  2. FLOLAN [Suspect]
     Active Substance: EPOPROSTENOL SODIUM
     Dosage: UNK
     Dates: start: 20130313
  3. FLOLAN [Suspect]
     Active Substance: EPOPROSTENOL SODIUM
     Dosage: 17NG/KG/MIN, CONTIN
     Dates: start: 20130313
  4. FLOLAN [Suspect]
     Active Substance: EPOPROSTENOL SODIUM
     Dosage: 17NG/KG/MIN, CONTINUOUSLY
     Dates: end: 20141003
  5. REVATIO [Concomitant]
     Active Substance: SILDENAFIL CITRATE
  6. FLOLAN [Suspect]
     Active Substance: EPOPROSTENOL SODIUM
     Indication: COR PULMONALE CHRONIC
     Dosage: 8 NG/KG/MIN. 6 NG/KG/MIN CONC. 10,000 NG/ML VIAL STR 0.5 MG. 7 NG/KG/MIN. 10 NG/KG/MIN (CONC. 1[...]
     Route: 042
     Dates: start: 20130313
  7. COUMADIN [Concomitant]
     Active Substance: WARFARIN SODIUM
  8. FLOLAN [Suspect]
     Active Substance: EPOPROSTENOL SODIUM
     Dosage: UNK
     Dates: start: 20130313
  9. WARFARIN [Concomitant]
     Active Substance: WARFARIN
  10. FLOLAN [Suspect]
     Active Substance: EPOPROSTENOL SODIUM
     Dosage: UNK
     Dates: start: 20130313
  11. FLOLAN [Suspect]
     Active Substance: EPOPROSTENOL SODIUM
     Dosage: UNK
     Dates: start: 20130313
  12. FLOLAN [Suspect]
     Active Substance: EPOPROSTENOL SODIUM
     Dosage: UNK
     Dates: start: 20130313
  13. FLOLAN [Suspect]
     Active Substance: EPOPROSTENOL SODIUM
     Dosage: UNK
     Dates: start: 20130313
  14. FLOLAN [Suspect]
     Active Substance: EPOPROSTENOL SODIUM
     Dosage: UNK
     Dates: start: 20130313
  15. FLOLAN [Suspect]
     Active Substance: EPOPROSTENOL SODIUM
     Indication: ATRIAL SEPTAL DEFECT
     Dosage: UNK
     Dates: start: 20130313
  16. FLOLAN [Suspect]
     Active Substance: EPOPROSTENOL SODIUM
     Dosage: UNK
     Dates: start: 20130313
  17. TEGADERM [Suspect]
     Active Substance: 2-HYDROXYETHYL METHACRYLATE
     Indication: PRODUCT USED FOR UNKNOWN INDICATION
     Dosage: UNKNOWN
     Route: 062
     Dates: end: 20130617

REACTIONS (24)
  - Vomiting [Unknown]
  - Dyspnoea exertional [Recovered/Resolved]
  - Procedural pain [Not Recovered/Not Resolved]
  - Cardiac operation [Unknown]
  - Investigation [Unknown]
  - Sepsis [Unknown]
  - Dehydration [Recovered/Resolved]
  - Anxiety [Recovered/Resolved]
  - Pain in jaw [Recovered/Resolved]
  - Application site pruritus [Recovered/Resolved]
  - Catheter site rash [Recovered/Resolved]
  - Pain [Unknown]
  - Catheter placement [Unknown]
  - Fatigue [Recovered/Resolved]
  - Medical device complication [Unknown]
  - Device related infection [Unknown]
  - Catheterisation cardiac [Unknown]
  - Catheter removal [Unknown]
  - Nausea [Unknown]
  - Pulmonary arterial pressure increased [Unknown]
  - Clostridium difficile infection [Unknown]
  - Application site rash [Unknown]
  - Device breakage [Unknown]
  - Pulmonary arterial hypertension [Unknown]

NARRATIVE: CASE EVENT DATE: 20131201
